FAERS Safety Report 6136753-4 (Version None)
Quarter: 2009Q1

REPORT INFORMATION
  Report Type: 
  Country: None (occurrence: None)
  Receive Date: 20090325
  Receipt Date: 20090312
  Transmission Date: 20090719
  Serious: Yes (Other)
  Sender: FDA-Public Use
  Company Number: 2009S1003014

PATIENT
  Age: 15 Year
  Sex: Male

DRUGS (2)
  1. AMNESTEEM [Suspect]
     Indication: ACNE CYSTIC
     Dosage: 40 MG; DAILY; ORAL; 40 MG;DAILY;ORAL
     Route: 047
     Dates: start: 20080401, end: 20081001
  2. AMNESTEEM [Suspect]
     Indication: ACNE CYSTIC
     Dosage: 40 MG; DAILY; ORAL; 40 MG;DAILY;ORAL
     Route: 047
     Dates: start: 20090120, end: 20090125

REACTIONS (3)
  - DEPRESSION [None]
  - INTENTIONAL SELF-INJURY [None]
  - SUICIDAL IDEATION [None]
